FAERS Safety Report 9219325 (Version 1)
Quarter: 2013Q1

REPORT INFORMATION
  Report Type: Spontaneous
  Country: US (occurrence: US)
  Receive Date: 20120830
  Receipt Date: 20120830
  Transmission Date: 20140127
  Serious: Yes (Other)
  Sender: FDA-Public Use
  Company Number: PHEH2011US03300

PATIENT
  Age: 78 Year
  Sex: Male

DRUGS (15)
  1. SANDOSTATIN LAR DEPOT (OCTREOTIDE W/POLY (D L-LACTIDE-CO-GLYCOLIDE)) SUSPENSION [Suspect]
     Indication: METASTATIC CARCINOID TUMOUR
     Dosage: INJECTION TAKEN ONCE EVERY 28 DAYS.
     Route: 030
  2. ADVICOR (LOVASTATIN, NICOTINIC ACID) [Concomitant]
  3. GLYBURIDE (GLIBENCLAMIDE) [Concomitant]
  4. LISINOPRIL (LISINOPRIL) [Concomitant]
  5. METFORMIN (METFORMIN) [Concomitant]
  6. FISH OIL (FISH OIL) [Concomitant]
  7. ASPIRIN (ACETYLSALICYLIC ACID) [Concomitant]
  8. VICODIN (HYDROCODONE BITARTRATE, PARCETAMOL) [Concomitant]
  9. LORAZEPAM (LORAZEPAM) [Concomitant]
  10. TENEX (GUANFACIN HYDROCHLORIDE) [Concomitant]
  11. PROTONIX (PANTOPRAZOLE) [Concomitant]
  12. ATARAX (HYDROXYZINE HYDROCHLORIDE) [Concomitant]
  13. ROXILOX (OXYCODONE HYDROCHLORIDE, PARACETAMOL) [Concomitant]
  14. CELEXA (CITALOPRAM HYDROBROMIDE) [Concomitant]
  15. GLIPIZIDE (GLIPIZIDE) [Concomitant]

REACTIONS (8)
  - Blood pressure systolic increased [None]
  - Hypoglycaemia [None]
  - Depression [None]
  - Malaise [None]
  - Abdominal pain [None]
  - Back pain [None]
  - Anxiety [None]
  - Flushing [None]
